FAERS Safety Report 4376420-0 (Version None)
Quarter: 2004Q2

REPORT INFORMATION
  Report Type: 
  Country: None (occurrence: None)
  Receive Date: 20040610
  Receipt Date: 20040610
  Transmission Date: 20050107
  Serious: Yes (Hospitalization)
  Sender: FDA-Public Use
  Company Number: None

PATIENT
  Age: 54 Year
  Sex: Female
  Weight: 90.2 kg

DRUGS (10)
  1. ARANESP [Suspect]
     Dosage: 200 MCG , 2 WEEKS, SQ
     Route: 058
     Dates: start: 20040518
  2. CARBOPLATIN [Suspect]
     Dates: start: 20040518
  3. DOXETAXEL [Suspect]
     Dates: start: 20040518
  4. COMPAZINE [Concomitant]
  5. IBUPROPHEN [Concomitant]
  6. NEXIUM [Concomitant]
  7. CORRECTOL [Concomitant]
  8. ATIVAN [Concomitant]
  9. MS CONTIN [Concomitant]
  10. OXYCODONE [Concomitant]

REACTIONS (6)
  - APRAXIA [None]
  - CEREBRAL ISCHAEMIA [None]
  - CEREBROVASCULAR ACCIDENT [None]
  - COGNITIVE DISORDER [None]
  - NAUSEA [None]
  - SPEECH DISORDER [None]
